FAERS Safety Report 7428727-8 (Version None)
Quarter: 2011Q2

REPORT INFORMATION
  Report Type: 
  Country: None (occurrence: None)
  Receive Date: 20110421
  Receipt Date: 20110415
  Transmission Date: 20111010
  Serious: Yes (Hospitalization)
  Sender: FDA-Public Use
  Company Number: US-B.I. PHARMACEUTICALS,INC./RIDGEFIELD-2011-BP-03764BP

PATIENT
  Age: 78 Year
  Sex: Male

DRUGS (10)
  1. LIPITOR [Concomitant]
  2. PLENDIL [Concomitant]
     Dosage: 10 MG
  3. ASPIRIN [Concomitant]
     Dosage: 81 MG
  4. PRADAXA [Suspect]
     Indication: ATRIAL FIBRILLATION
     Dosage: 300 MG
     Route: 048
     Dates: start: 20110129, end: 20110202
  5. PRADAXA [Suspect]
     Indication: PROPHYLAXIS
  6. VITAMIN D [Concomitant]
     Dosage: 2000 U
  7. ALLOPURINOL [Concomitant]
     Dosage: 300 MG
  8. LASIX [Concomitant]
     Dosage: 40 MG
  9. MULTAQ [Concomitant]
     Dosage: 800 MG
  10. PEPCID [Concomitant]
     Dosage: 20 MG

REACTIONS (1)
  - MELAENA [None]
